FAERS Safety Report 6186279-7 (Version None)
Quarter: 2009Q2

REPORT INFORMATION
  Report Type: 
  Country: None (occurrence: None)
  Receive Date: 20090511
  Receipt Date: 20090508
  Transmission Date: 20091009
  Serious: Yes (Death)
  Sender: FDA-Public Use
  Company Number: JP-JNJFOC-20090502039

PATIENT
  Age: 59 Year
  Sex: Male

DRUGS (6)
  1. ITRIZOLE [Suspect]
     Route: 042
  2. ITRIZOLE [Suspect]
     Indication: BRONCHOPULMONARY ASPERGILLOSIS
     Route: 042
  3. INDERAL [Concomitant]
     Indication: HYPERTENSION
     Route: 048
  4. JUVELA NICOTINATE [Concomitant]
     Indication: ALCOHOLISM
     Route: 048
  5. TEGRETOL [Concomitant]
     Indication: ALCOHOLISM
     Route: 048
  6. VITANEURIN [Concomitant]
     Indication: ALCOHOLISM
     Route: 048

REACTIONS (2)
  - DYSPNOEA [None]
  - PNEUMONIA ASPIRATION [None]
